FAERS Safety Report 10210586 (Version 1)
Quarter: 2014Q2

REPORT INFORMATION
  Report Type: Spontaneous
  Country: US (occurrence: US)
  Receive Date: 20140602
  Receipt Date: 20140602
  Transmission Date: 20141212
  Serious: No
  Sender: FDA-Public Use
  Company Number: US-ASTRAZENECA-2014SE35329

PATIENT
  Age: 75 Year
  Sex: Male
  Weight: 79.4 kg

DRUGS (4)
  1. LISINOPRIL [Suspect]
     Route: 048
  2. BRILINTA [Suspect]
     Indication: ACUTE CORONARY SYNDROME
     Route: 048
     Dates: start: 20140510, end: 20140514
  3. NITROGLYCERIN [Concomitant]
  4. PRAVASTATIN [Concomitant]

REACTIONS (2)
  - Swelling [Recovered/Resolved]
  - Rash [Recovered/Resolved]
